FAERS Safety Report 8036726-0 (Version None)
Quarter: 2012Q1

REPORT INFORMATION
  Report Type: 
  Country: None (occurrence: None)
  Receive Date: 20120111
  Receipt Date: 20120103
  Transmission Date: 20120608
  Serious: Yes (Hospitalization)
  Sender: FDA-Public Use
  Company Number: NL-MEDIMMUNE-MEDI-0014391

PATIENT
  Sex: Male

DRUGS (4)
  1. FERRO [Concomitant]
     Dates: start: 20110101
  2. POLYETHYLENE GLYCOL [Concomitant]
     Dates: start: 20110101
  3. SYNAGIS [Suspect]
     Indication: PREMATURE BABY
     Route: 030
     Dates: end: 20111205
  4. SYNAGIS [Suspect]
     Route: 030
     Dates: start: 20120103, end: 20120103

REACTIONS (2)
  - INFANTILE SPITTING UP [None]
  - WEIGHT DECREASED [None]
